FAERS Safety Report 7963145-5 (Version None)
Quarter: 2011Q4

REPORT INFORMATION
  Report Type: 
  Country: None (occurrence: None)
  Receive Date: 20111207
  Receipt Date: 20030325
  Transmission Date: 20120403
  Serious: Yes (Hospitalization)
  Sender: FDA-Public Use
  Company Number: PHHY2003CO005084

PATIENT
  Sex: Male

DRUGS (6)
  1. AKINETON [Concomitant]
     Indication: PARKINSONISM
  2. AKATINOL [Concomitant]
  3. DOLEX /DOM/ [Concomitant]
     Dosage: SINCE 2 MONTHS AGO, UNK UKN
  4. HALOPIDOL [Concomitant]
  5. EXELON [Suspect]
     Indication: DEMENTIA ALZHEIMER'S TYPE
     Route: 048
     Dates: start: 20010601
  6. MYLANTA (ALUMINIUM HYDROXIDE/MAGNESIUM HYDROXIDE/SIMETICONE) [Concomitant]
     Dosage: SINCE MAR 2003, UNK UKN

REACTIONS (3)
  - GASTRIC HAEMORRHAGE [None]
  - PAIN IN EXTREMITY [None]
  - BONE PAIN [None]
